FAERS Safety Report 6694756-5 (Version None)
Quarter: 2010Q2

REPORT INFORMATION
  Report Type: 
  Country: None (occurrence: None)
  Receive Date: 20100423
  Receipt Date: 20100413
  Transmission Date: 20101027
  Serious: Yes (Hospitalization)
  Sender: FDA-Public Use
  Company Number: B0643971A

PATIENT
  Sex: Female

DRUGS (2)
  1. HYCAMTIN [Suspect]
     Dosage: 9MG WEEKLY
     Route: 048
     Dates: start: 20100311
  2. CARBOPLATIN [Suspect]
     Dosage: 425MG CYCLIC
     Route: 042
     Dates: start: 20100311

REACTIONS (2)
  - APLASIA [None]
  - ASTHENIA [None]
